FAERS Safety Report 5493288-X (Version None)
Quarter: 2007Q4

REPORT INFORMATION
  Report Type: 
  Country: None (occurrence: None)
  Receive Date: 20071022
  Receipt Date: 20071022
  Transmission Date: 20080405
  Serious: Yes (Other)
  Sender: FDA-Public Use
  Company Number: None

PATIENT
  Age: 58 Year
  Sex: Female

DRUGS (2)
  1. LEVAQUIN [Suspect]
     Dates: start: 20051213, end: 20051218
  2. VALSARTAN [Suspect]
     Dates: start: 20040901, end: 20060110

REACTIONS (6)
  - ASCITES [None]
  - AUTOIMMUNE HEPATITIS [None]
  - HEPATIC CIRRHOSIS [None]
  - HEPATIC FIBROSIS [None]
  - LIVER INJURY [None]
  - RECTAL PROLAPSE [None]
